FAERS Safety Report 19976196 (Version 1)
Quarter: 2021Q4

REPORT INFORMATION
  Report Type: Other
  Country: GB (occurrence: GB)
  Receive Date: 20211020
  Receipt Date: 20211020
  Transmission Date: 20220303
  Serious: Yes (Hospitalization)
  Sender: FDA-Public Use
  Company Number: GB-B.BRAUN MEDICAL INC.-2120804

PATIENT
  Age: 5 Year
  Sex: Male

DRUGS (1)
  1. CEFTRIAXONE SODIUM [Suspect]
     Active Substance: CEFTRIAXONE SODIUM

REACTIONS (3)
  - Cardiac arrest [Unknown]
  - Haemolytic anaemia [Unknown]
  - Pyrexia [Unknown]
